FAERS Safety Report 6740229-0 (Version None)
Quarter: 2010Q2

REPORT INFORMATION
  Report Type: 
  Country: None (occurrence: None)
  Receive Date: 20100525
  Receipt Date: 20100518
  Transmission Date: 20101027
  Serious: Yes (Death)
  Sender: FDA-Public Use
  Company Number: B0653515A

PATIENT
  Age: 14 Year
  Sex: Male

DRUGS (1)
  1. SERETIDE [Suspect]
     Indication: ASTHMA
     Dosage: 200MCG PER DAY
     Route: 055

REACTIONS (1)
  - AORTIC DISSECTION RUPTURE [None]
